FAERS Safety Report 19446398 (Version 1)
Quarter: 2021Q2

REPORT INFORMATION
  Report Type: Other
  Country: JP (occurrence: JP)
  Receive Date: 20210622
  Receipt Date: 20210622
  Transmission Date: 20210717
  Serious: Yes (Hospitalization)
  Sender: FDA-Public Use
  Company Number: JP-ROCHE-2851217

PATIENT
  Age: 69 Year
  Sex: Male
  Weight: 65.8 kg

DRUGS (7)
  1. AVASTIN [Suspect]
     Active Substance: BEVACIZUMAB
     Route: 041
     Dates: start: 20210319
  2. CARBOPLATIN. [Concomitant]
     Active Substance: CARBOPLATIN
     Dosage: 448 MILLIGRAM
     Route: 041
     Dates: start: 20210319
  3. PACLITAXEL. [Concomitant]
     Active Substance: PACLITAXEL
     Dosage: 278 MILLIGRAM
     Route: 041
     Dates: start: 20210319
  4. CARBOPLATIN. [Concomitant]
     Active Substance: CARBOPLATIN
     Indication: LUNG ADENOCARCINOMA
     Dosage: 445 MILLIGRAM, QD
     Route: 041
     Dates: start: 20210219, end: 20210219
  5. PACLITAXEL. [Concomitant]
     Active Substance: PACLITAXEL
     Indication: LUNG ADENOCARCINOMA
     Dosage: 286 MILLIGRAM, QD
     Route: 041
     Dates: start: 20210219, end: 20210219
  6. AVASTIN [Suspect]
     Active Substance: BEVACIZUMAB
     Indication: LUNG ADENOCARCINOMA
     Dosage: 1010 MILLIGRAM, QD
     Route: 041
     Dates: start: 20210219, end: 20210219
  7. TECENTRIQ [Suspect]
     Active Substance: ATEZOLIZUMAB
     Indication: LUNG ADENOCARCINOMA
     Route: 041
     Dates: start: 20210219

REACTIONS (4)
  - Duodenal ulcer haemorrhage [Recovering/Resolving]
  - Fall [Unknown]
  - Dizziness [Unknown]
  - Febrile neutropenia [Recovered/Resolved]

NARRATIVE: CASE EVENT DATE: 202103
